FAERS Safety Report 16453546 (Version 14)
Quarter: 2021Q1

REPORT INFORMATION
  Report Type: Report from Study
  Country: CA (occurrence: CA)
  Receive Date: 20190619
  Receipt Date: 20210212
  Transmission Date: 20210419
  Serious: Yes (Hospitalization, Other)
  Sender: FDA-Public Use
  Company Number: CA-GLAXOSMITHKLINE-CA2019GSK107002

PATIENT
  Sex: Female

DRUGS (20)
  1. SALBUTAMOL SULPHATE [Suspect]
     Active Substance: ALBUTEROL SULFATE
     Indication: ASTHMA
  2. NUCALA [Suspect]
     Active Substance: MEPOLIZUMAB
     Dosage: 100 MG, Z MONTHLY
     Route: 042
  3. VITAMIN D [Suspect]
     Active Substance: VITAMIN D NOS
     Indication: PRODUCT USED FOR UNKNOWN INDICATION
     Dosage: UNK
  4. SALBUTAMOL SULPHATE [Suspect]
     Active Substance: ALBUTEROL SULFATE
     Indication: CHRONIC OBSTRUCTIVE PULMONARY DISEASE
     Dosage: UNK, AS REQUIRED
     Dates: start: 20190611
  5. CALCIUM SUPPLEMENT [Suspect]
     Active Substance: CALCIUM
     Indication: PRODUCT USED FOR UNKNOWN INDICATION
     Dosage: UNK UNK, QD
  6. PULMICORT TURBUHALER [Suspect]
     Active Substance: BUDESONIDE
     Indication: ASTHMA
  7. BREO ELLIPTA [Suspect]
     Active Substance: FLUTICASONE FUROATE\VILANTEROL TRIFENATATE
     Indication: CHRONIC OBSTRUCTIVE PULMONARY DISEASE
     Dosage: UNK
  8. BREO ELLIPTA [Suspect]
     Active Substance: FLUTICASONE FUROATE\VILANTEROL TRIFENATATE
     Indication: ASTHMA
  9. ANORO [Suspect]
     Active Substance: UMECLIDINIUM BROMIDE\VILANTEROL TRIFENATATE
     Indication: CHRONIC OBSTRUCTIVE PULMONARY DISEASE
     Dosage: 1 PUFF(S), QD
     Dates: start: 201811
  10. OMEPRAZOLE. [Suspect]
     Active Substance: OMEPRAZOLE
     Indication: PRODUCT USED FOR UNKNOWN INDICATION
     Dosage: UNK UNK, QD
  11. PREDNISONE. [Suspect]
     Active Substance: PREDNISONE
     Indication: CHRONIC OBSTRUCTIVE PULMONARY DISEASE
     Dosage: 15 MG, 1D
  12. OXYGEN. [Suspect]
     Active Substance: OXYGEN
     Indication: PRODUCT USED FOR UNKNOWN INDICATION
     Dosage: UNK, QD, 3 L/MIN AT REST AND 4 L/MIN DURING ACTIVITY, QD
     Route: 045
  13. NUCALA [Suspect]
     Active Substance: MEPOLIZUMAB
     Indication: ASTHMA
     Dosage: 100 MG, Z MONTHLY
     Route: 042
     Dates: start: 20190611
  14. ANORO [Suspect]
     Active Substance: UMECLIDINIUM BROMIDE\VILANTEROL TRIFENATATE
     Indication: ASTHMA
  15. PULMICORT TURBUHALER [Suspect]
     Active Substance: BUDESONIDE
     Indication: CHRONIC OBSTRUCTIVE PULMONARY DISEASE
     Dosage: 2 PUFF(S), BID
     Dates: start: 201811
  16. PREDNISONE. [Suspect]
     Active Substance: PREDNISONE
     Dosage: 7.5 MG, QD
  17. RISEDRONATE [Suspect]
     Active Substance: RISEDRONATE SODIUM
     Indication: PRODUCT USED FOR UNKNOWN INDICATION
     Dosage: 35 MG, WE
     Route: 048
  18. NUCALA [Suspect]
     Active Substance: MEPOLIZUMAB
     Dosage: 100 MG, Z MONTHLY
     Route: 042
  19. SEPTRA [Suspect]
     Active Substance: SULFAMETHOXAZOLE\TRIMETHOPRIM
     Indication: PRODUCT USED FOR UNKNOWN INDICATION
     Dosage: UNK
     Route: 048
  20. PREDNISONE. [Suspect]
     Active Substance: PREDNISONE
     Dosage: 40 MG

REACTIONS (23)
  - Bronchitis [Unknown]
  - Blood count abnormal [Unknown]
  - Dyspnoea [Not Recovered/Not Resolved]
  - Loss of personal independence in daily activities [Unknown]
  - Pulmonary function test abnormal [Unknown]
  - Gait disturbance [Unknown]
  - Lung adenocarcinoma stage IV [Not Recovered/Not Resolved]
  - Metastases to central nervous system [Unknown]
  - Chest discomfort [Unknown]
  - Wheezing [Not Recovered/Not Resolved]
  - Seizure [Recovered/Resolved]
  - Bone pain [Unknown]
  - Steroid dependence [Not Recovered/Not Resolved]
  - Exercise tolerance decreased [Unknown]
  - Therapeutic product effect incomplete [Unknown]
  - Heart rate increased [Unknown]
  - Joint swelling [Unknown]
  - Asthma [Recovered/Resolved]
  - Pneumothorax [Recovered/Resolved]
  - Craniotomy [Unknown]
  - Chronic obstructive pulmonary disease [Not Recovered/Not Resolved]
  - Illness [Unknown]
  - Sleep disorder due to a general medical condition [Unknown]
